FAERS Safety Report 21767791 (Version 1)
Quarter: 2022Q4

REPORT INFORMATION
  Report Type: Spontaneous
  Country: FR (occurrence: FR)
  Receive Date: 20221222
  Receipt Date: 20221222
  Transmission Date: 20230112
  Serious: Yes (Hospitalization, Other)
  Sender: FDA-Public Use
  Company Number: None

PATIENT
  Age: 46 Year
  Sex: Male
  Weight: 78 kg

DRUGS (1)
  1. ETHINYL ESTRADIOL\LEVONORGESTREL [Suspect]
     Active Substance: ETHINYL ESTRADIOL\LEVONORGESTREL
     Indication: Contraception
     Dosage: 1 DF
     Route: 048
     Dates: start: 19950810, end: 20110810

REACTIONS (6)
  - Meningioma [Not Recovered/Not Resolved]
  - Headache [Unknown]
  - Disorientation [Unknown]
  - Head injury [Unknown]
  - Vomiting [Unknown]
  - COVID-19 [Unknown]

NARRATIVE: CASE EVENT DATE: 20200601
